FAERS Safety Report 13781663 (Version 1)
Quarter: 2017Q3

REPORT INFORMATION
  Report Type: Spontaneous
  Country: GB (occurrence: GB)
  Receive Date: 20170724
  Receipt Date: 20170724
  Transmission Date: 20171127
  Serious: Yes (Other)
  Sender: FDA-Public Use
  Company Number: GB-PFIZER INC-3157213

PATIENT
  Sex: Female

DRUGS (3)
  1. SODIUM CHLORIDE. [Concomitant]
     Active Substance: SODIUM CHLORIDE
     Indication: MEDICATION DILUTION
     Dosage: 40 ML, FREQ: 5 WEEK; INTERVAL: 1
     Route: 058
     Dates: start: 20160125
  2. DEFEROXAMINE MESILATE [Suspect]
     Active Substance: DEFEROXAMINE MESYLATE
     Indication: PRODUCT USED FOR UNKNOWN INDICATION
     Dosage: 2 G, FREQ: 5 WEEK; INTERVAL: 1
     Route: 058
     Dates: start: 20160125
  3. WATER FOR INJECTION [Concomitant]
     Active Substance: WATER
     Indication: MEDICATION DILUTION
     Dosage: FREQ: 5 WEEK; INTERVAL: 1
     Route: 058
     Dates: start: 20160125

REACTIONS (2)
  - Haemoglobin decreased [Unknown]
  - Nausea [Unknown]

NARRATIVE: CASE EVENT DATE: 20160125
